FAERS Safety Report 9122409 (Version 3)
Quarter: 2014Q3

REPORT INFORMATION
  Report Type: Spontaneous
  Country: MX (occurrence: MX)
  Receive Date: 20130227
  Receipt Date: 20140726
  Transmission Date: 20150326
  Serious: Yes (Other)
  Sender: FDA-Public Use
  Company Number: PHHY2013MX018275

PATIENT
  Age: 52 Year
  Sex: Female
  Weight: 87 kg

DRUGS (8)
  1. CO-DIOVAN [Suspect]
     Active Substance: HYDROCHLOROTHIAZIDE\VALSARTAN
     Indication: HYPERTENSION
     Dosage: 2 DF DAILY
     Dates: start: 2011
  2. PRAVASTATIN [Concomitant]
     Active Substance: PRAVASTATIN\PRAVASTATIN SODIUM
     Indication: BLOOD TRIGLYCERIDES ABNORMAL
     Dosage: 1 DF, DAILY
     Dates: start: 201301
  3. RANITIDINE [Concomitant]
     Active Substance: RANITIDINE\RANITIDINE HYDROCHLORIDE
     Dosage: 1 UKN, DAILY
     Dates: start: 201301
  4. DELAFOXINA [Concomitant]
     Indication: ANXIETY
     Dosage: 2 UKN, DAILY
  5. BECLOMETASONE [Concomitant]
     Active Substance: BECLOMETHASONE DIPROPIONATE
     Indication: ASTHMA
     Dosage: 2 UKN, DAILY
     Dates: start: 201209
  6. SALBUTAMOL [Concomitant]
     Active Substance: ALBUTEROL
     Indication: ASTHMA
     Dosage: 2 UKN, UNK
  7. GALVUS MET [Suspect]
     Active Substance: METFORMIN HYDROCHLORIDE\VILDAGLIPTIN
     Indication: DIABETES MELLITUS
     Dosage: 2 DF (500 MG METF/50MG VILD), DAILY
     Route: 048
     Dates: start: 2011
  8. METHYLDOPA. [Concomitant]
     Active Substance: METHYLDOPA
     Indication: HIP ARTHROPLASTY
     Dosage: 2 DF, DAILY
     Dates: start: 2011

REACTIONS (9)
  - Pain in extremity [Not Recovered/Not Resolved]
  - Paraesthesia [Not Recovered/Not Resolved]
  - Hepatic steatosis [Not Recovered/Not Resolved]
  - Cardiovascular disorder [Not Recovered/Not Resolved]
  - Blood glucose increased [Unknown]
  - Anaemia [Not Recovered/Not Resolved]
  - Pneumonia [Not Recovered/Not Resolved]
  - Fluid retention [Not Recovered/Not Resolved]
  - Blood triglycerides increased [Unknown]

NARRATIVE: CASE EVENT DATE: 2011
